FAERS Safety Report 6099573-5 (Version None)
Quarter: 2009Q1

REPORT INFORMATION
  Report Type: 
  Country: None (occurrence: None)
  Receive Date: 20090303
  Receipt Date: 20090223
  Transmission Date: 20090719
  Serious: Yes (Hospitalization)
  Sender: FDA-Public Use
  Company Number: US-BAXTER-2009BH002964

PATIENT
  Age: 50 Year
  Sex: Female
  Weight: 66 kg

DRUGS (8)
  1. FENTANYL CITRATE [Suspect]
     Indication: DRUG USE FOR UNKNOWN INDICATION
     Route: 037
  2. BUPIVACAINE HYDROCHLORIDE [Suspect]
     Indication: DRUG USE FOR UNKNOWN INDICATION
     Route: 037
  3. UNKNOWN INVESTIGATIONAL PRODUCT [Suspect]
     Indication: COLON CANCER METASTATIC
     Route: 042
     Dates: start: 20081030, end: 20081031
  4. LASIX [Concomitant]
     Indication: DRUG USE FOR UNKNOWN INDICATION
     Route: 065
     Dates: start: 20081018
  5. WELLBUTRIN [Concomitant]
     Indication: DRUG USE FOR UNKNOWN INDICATION
     Route: 065
     Dates: start: 19980101
  6. MIRALAX [Concomitant]
     Indication: DRUG USE FOR UNKNOWN INDICATION
     Route: 065
     Dates: start: 20080901
  7. MULTI-VITAMINS [Concomitant]
     Indication: DRUG USE FOR UNKNOWN INDICATION
     Route: 065
     Dates: start: 20050101
  8. ADVIL [Concomitant]
     Indication: DRUG USE FOR UNKNOWN INDICATION
     Route: 065
     Dates: start: 20050101

REACTIONS (6)
  - ABDOMINAL PAIN [None]
  - BACK PAIN [None]
  - BACTERAEMIA [None]
  - NAUSEA [None]
  - URINARY TRACT INFECTION [None]
  - VOMITING [None]
